FAERS Safety Report 7058509-0 (Version None)
Quarter: 2010Q4

REPORT INFORMATION
  Report Type: 
  Country: None (occurrence: None)
  Receive Date: 20101022
  Receipt Date: 20101018
  Transmission Date: 20110411
  Serious: Yes (Other)
  Sender: FDA-Public Use
  Company Number: US-WYE-H18225810

PATIENT
  Sex: Female
  Weight: 70.37 kg

DRUGS (4)
  1. PRISTIQ [Suspect]
     Indication: DEPRESSION
  2. SPIRIVA [Concomitant]
     Route: 055
  3. AZMACORT [Concomitant]
  4. TRICOR [Concomitant]
     Dosage: UNKNOWN

REACTIONS (4)
  - ABDOMINAL PAIN UPPER [None]
  - DIABETES MELLITUS [None]
  - GLOSSODYNIA [None]
  - NAUSEA [None]
